FAERS Safety Report 14640261 (Version 1)
Quarter: 2018Q1

REPORT INFORMATION
  Report Type: Spontaneous
  Country: US (occurrence: US)
  Receive Date: 20180315
  Receipt Date: 20180315
  Transmission Date: 20180509
  Serious: No
  Sender: FDA-Public Use
  Company Number: US-BAYER-2018-050454

PATIENT
  Age: 38 Year
  Sex: Male

DRUGS (1)
  1. GADAVIST [Suspect]
     Active Substance: GADOBUTROL
     Indication: NUCLEAR MAGNETIC RESONANCE IMAGING
     Dosage: 10 ML, ONCE
     Route: 042

REACTIONS (4)
  - Pruritus [None]
  - Urticaria [None]
  - Erythema [None]
  - Rash macular [None]

NARRATIVE: CASE EVENT DATE: 20180312
